FAERS Safety Report 6126771-4 (Version None)
Quarter: 2009Q1

REPORT INFORMATION
  Report Type: 
  Country: None (occurrence: None)
  Receive Date: 20090320
  Receipt Date: 20090309
  Transmission Date: 20090719
  Serious: Yes (Other)
  Sender: FDA-Public Use
  Company Number: US-JNJFOC-20090303747

PATIENT
  Age: 3 Year
  Sex: Female
  Weight: 14.52 kg

DRUGS (4)
  1. TYLENOL (CAPLET) [Suspect]
  2. TYLENOL (CAPLET) [Suspect]
     Indication: DRUG USE FOR UNKNOWN INDICATION
  3. CHILDREN'S MOTRIN [Suspect]
  4. CHILDREN'S MOTRIN [Suspect]
     Indication: BODY TEMPERATURE INCREASED
     Dosage: 100MG, EVERY 4-5 HOURS (4 DOSES TOTAL)

REACTIONS (3)
  - BODY TEMPERATURE DECREASED [None]
  - INTENTIONAL DRUG MISUSE [None]
  - MEDICATION ERROR [None]
